FAERS Safety Report 7321150-6 (Version None)
Quarter: 2011Q1

REPORT INFORMATION
  Report Type: 
  Country: None (occurrence: None)
  Receive Date: 20110228
  Receipt Date: 20110217
  Transmission Date: 20110831
  Serious: Yes (Death, Life-Threatening, Hospitalization)
  Sender: FDA-Public Use
  Company Number: FR-SANOFI-AVENTIS-2011SA010371

PATIENT
  Age: 77 Year
  Sex: Female

DRUGS (9)
  1. PREVISCAN [Suspect]
     Route: 048
     Dates: end: 20110117
  2. AMIODARONE HCL [Concomitant]
     Route: 048
  3. ANTIBIOTICS [Concomitant]
     Route: 065
     Dates: start: 20110101
  4. ANTIBIOTICS [Concomitant]
     Indication: PULMONARY SEPSIS
     Route: 065
     Dates: start: 20110101
  5. ARIXTRA [Concomitant]
  6. DILTIAZEM HCL [Concomitant]
     Route: 048
  7. ATACAND [Suspect]
     Route: 048
     Dates: end: 20110117
  8. PREDNISONE [Concomitant]
     Indication: RHEUMATOID ARTHRITIS
     Route: 048
  9. LASIX [Suspect]
     Route: 048
     Dates: end: 20110119

REACTIONS (1)
  - AGRANULOCYTOSIS [None]
